FAERS Safety Report 7560648-2 (Version None)
Quarter: 2011Q2

REPORT INFORMATION
  Report Type: 
  Country: None (occurrence: None)
  Receive Date: 20110614
  Receipt Date: 20110520
  Transmission Date: 20111010
  Serious: Yes (Life-Threatening)
  Sender: FDA-Public Use
  Company Number: JP-2011-10602

PATIENT
  Age: 60 Year
  Sex: Female
  Weight: 70 kg

DRUGS (10)
  1. ACINON (NIZATIDINE) TABLET [Concomitant]
  2. PLETAAL (CILOSTAZOL) ORAL POWDER, 20% PERCENT [Suspect]
     Indication: CEREBROVASCULAR SPASM
     Dosage: 4 DF DOSAGE FORM, BID, PARENTERAL
     Route: 051
     Dates: start: 20110325, end: 20110329
  3. ERIL (FASUDIL HYDROCHLORIDE) INJECTION [Concomitant]
  4. BIOFERMIN (BACILLUS SUBTILIS, LACTOBACILLUS ACIDOPHILUS, STREPTOCOCCUS [Concomitant]
  5. PRIMPERAN (METOCLOPRAMIDE HYDROCHLORIDE) INJECTION [Concomitant]
  6. ATELEC (CILNIDIPINE) TABLET [Concomitant]
  7. FLUMARIN (FLOMOXEF SODIUM) [Concomitant]
  8. HOCHU-EKKI-TO (HOCHU-EKKI-TO) GRANULES [Concomitant]
  9. GLYCEOL (FRUCTOSE, GLYCEROL) INJECTION [Concomitant]
  10. DAI-KENCHU-TO (DAI-KENCHU-TO) GRANULES [Concomitant]

REACTIONS (3)
  - HYPOTENSION [None]
  - CARDIAC FAILURE [None]
  - TACHYCARDIA [None]
